FAERS Safety Report 16360154 (Version 1)
Quarter: 2019Q2

REPORT INFORMATION
  Report Type: Spontaneous
  Country: FR (occurrence: FR)
  Receive Date: 20190528
  Receipt Date: 20190528
  Transmission Date: 20190711
  Serious: Yes (Hospitalization)
  Sender: FDA-Public Use
  Company Number: FR-ABBVIE-19P-056-2798810-00

PATIENT
  Age: 9 Year
  Sex: Male
  Weight: 46 kg

DRUGS (4)
  1. LAMICTAL [Concomitant]
     Active Substance: LAMOTRIGINE
     Indication: SEIZURE
     Dosage: 50 MILLIGRAM, QD
     Route: 048
     Dates: start: 2018
  2. ENANTONE LP [Suspect]
     Active Substance: LEUPROLIDE ACETATE
     Indication: PRECOCIOUS PUBERTY
     Dosage: 3.75 MILLIGRAM
     Route: 058
     Dates: start: 20190426, end: 20190426
  3. VOGALENE [Suspect]
     Active Substance: METOPIMAZINE
     Indication: VOMITING
     Dosage: UNK
     Route: 048
     Dates: start: 20190430, end: 20190430
  4. PARACETAMOL [Concomitant]
     Active Substance: ACETAMINOPHEN
     Indication: PYREXIA
     Dosage: UNK
     Route: 048

REACTIONS (1)
  - Partial seizures [Recovered/Resolved]

NARRATIVE: CASE EVENT DATE: 20190430
